FAERS Safety Report 18256411 (Version 3)
Quarter: 2021Q2

REPORT INFORMATION
  Report Type: Report from Study
  Country: None (occurrence: US)
  Receive Date: 20200911
  Receipt Date: 20210511
  Transmission Date: 20210717
  Serious: Yes (Hospitalization)
  Sender: FDA-Public Use
  Company Number: US-ABBVIE-20K-163-3560929-00

PATIENT
  Sex: Female
  Weight: 43.58 kg

DRUGS (2)
  1. HUMIRA [Suspect]
     Active Substance: ADALIMUMAB
     Indication: RHEUMATOID ARTHRITIS
  2. HUMIRA [Suspect]
     Active Substance: ADALIMUMAB
     Indication: CROHN^S DISEASE
     Dosage: CITRATE FREE
     Route: 058

REACTIONS (8)
  - Anaemia [Recovering/Resolving]
  - Tooth disorder [Not Recovered/Not Resolved]
  - Mouth ulceration [Recovered/Resolved]
  - Haemoglobin decreased [Recovering/Resolving]
  - Peripheral swelling [Recovering/Resolving]
  - Iron deficiency [Unknown]
  - Peripheral swelling [Not Recovered/Not Resolved]
  - Weight decreased [Not Recovered/Not Resolved]

NARRATIVE: CASE EVENT DATE: 2020
